FAERS Safety Report 6522733-3 (Version None)
Quarter: 2009Q4

REPORT INFORMATION
  Report Type: 
  Country: None (occurrence: None)
  Receive Date: 20091230
  Receipt Date: 20091223
  Transmission Date: 20100525
  Serious: Yes (Other)
  Sender: FDA-Public Use
  Company Number: US-BAYER-200917876BCC

PATIENT
  Age: 27 Year
  Sex: Female
  Weight: 73 kg

DRUGS (2)
  1. MIDOL PM CAPLETS [Suspect]
     Indication: DYSMENORRHOEA
     Dosage: TOTAL DAILY DOSE: 1 DF
     Route: 048
     Dates: start: 20091220, end: 20091220
  2. ONE A DAY WOMEN'S [Concomitant]
     Route: 065

REACTIONS (2)
  - HYPERSENSITIVITY [None]
  - SWELLING FACE [None]
